FAERS Safety Report 7325476-1 (Version None)
Quarter: 2011Q1

REPORT INFORMATION
  Report Type: 
  Country: None (occurrence: None)
  Receive Date: 20110218
  Receipt Date: 20110203
  Transmission Date: 20110831
  Serious: Yes (Hospitalization)
  Sender: FDA-Public Use
  Company Number: AUR-APL-2011-01576

PATIENT
  Age: 60 Year
  Sex: Male
  Weight: 65 kg

DRUGS (12)
  1. PIRITON [Concomitant]
  2. AMOXICILLIN [Suspect]
     Indication: LOWER RESPIRATORY TRACT INFECTION
     Dosage: 500MG
  3. PANTOPRAZOLE [Concomitant]
  4. CO-DYDRAMOL [Concomitant]
  5. MELOXICAM [Concomitant]
  6. NICORETTE [Concomitant]
  7. NICOTINE [Concomitant]
  8. SALAMOL [Concomitant]
  9. ALUPENT [Suspect]
     Indication: LOWER RESPIRATORY TRACT INFECTION
     Dosage: 20MG - TID - ORAL
     Route: 048
     Dates: start: 20100427, end: 20100430
  10. AMITRIPTYLINE HCL [Concomitant]
  11. FLIXONASE AQUEOUS [Concomitant]
  12. PROPRANOLOL HCL [Concomitant]

REACTIONS (3)
  - DRUG HYPERSENSITIVITY [None]
  - DERMATITIS ALLERGIC [None]
  - VISUAL IMPAIRMENT [None]
